FAERS Safety Report 17174277 (Version 1)
Quarter: 2019Q4

REPORT INFORMATION
  Report Type: Report from Study
  Country: NL (occurrence: NL)
  Receive Date: 20191219
  Receipt Date: 20191219
  Transmission Date: 20200122
  Serious: Yes (Hospitalization)
  Sender: FDA-Public Use
  Company Number: NL-TEVA-2019-NL-1153019

PATIENT
  Age: 31 Year
  Sex: Female

DRUGS (2)
  1. MESALAZINE ORAAL [Concomitant]
     Dosage: 1500 MILLIGRAM DAILY;
     Dates: start: 19990903, end: 20020609
  2. PREDNISONE. [Suspect]
     Active Substance: PREDNISONE
     Indication: CROHN^S DISEASE
     Dosage: 35MG, 1X/D
     Dates: start: 20020701, end: 20050111

REACTIONS (1)
  - Psychotic disorder [Recovered/Resolved]

NARRATIVE: CASE EVENT DATE: 20020609
